FAERS Safety Report 8436697-9 (Version None)
Quarter: 2012Q2

REPORT INFORMATION
  Report Type: 
  Country: None (occurrence: None)
  Receive Date: 20120608
  Receipt Date: 20120608
  Transmission Date: 20120825
  Serious: Yes (Other)
  Sender: FDA-Public Use
  Company Number: None

PATIENT
  Sex: Female
  Weight: 67.1324 kg

DRUGS (8)
  1. SERTRALINE HYDROCHLORIDE [Suspect]
     Indication: DEPRESSION
     Dosage: 100 MG P.O. X1 ONCE DAILY ORAL
     Route: 048
     Dates: start: 20111116
  2. SERTRALINE HYDROCHLORIDE [Suspect]
     Indication: POST-TRAUMATIC STRESS DISORDER
     Dosage: 100 MG P.O. X1 ONCE DAILY ORAL
     Route: 048
     Dates: start: 20111116
  3. BENZTROPINE MESYLATE [Concomitant]
  4. LORAZEPAM [Concomitant]
  5. SERTRALINE HYDROCHLORIDE [Suspect]
     Indication: POST-TRAUMATIC STRESS DISORDER
     Dosage: 50 MG P.O. X2 ONCE DAILY ORAL
     Route: 048
     Dates: start: 20120319
  6. SERTRALINE HYDROCHLORIDE [Suspect]
     Indication: DEPRESSION
     Dosage: 50 MG P.O. X2 ONCE DAILY ORAL
     Route: 048
     Dates: start: 20120319
  7. HALOPERIDOL DECANOATE [Concomitant]
  8. HALOPERIDOL [Concomitant]

REACTIONS (4)
  - PRODUCT SUBSTITUTION ISSUE [None]
  - PRODUCT QUALITY ISSUE [None]
  - RASH [None]
  - PURULENCE [None]
